FAERS Safety Report 25002334 (Version 1)
Quarter: 2025Q1

REPORT INFORMATION
  Report Type: Spontaneous
  Country: US (occurrence: US)
  Receive Date: 20250224
  Receipt Date: 20250224
  Transmission Date: 20250409
  Serious: Yes (Hospitalization, Other)
  Sender: PFIZER
  Company Number: US-PFIZER INC-202500039582

PATIENT
  Age: 77 Year
  Sex: Female

DRUGS (2)
  1. VYNDAMAX [Suspect]
     Active Substance: TAFAMIDIS
     Dosage: 61MG CAPSULES PO DAILY
     Route: 048
  2. ASPIRIN [Suspect]
     Active Substance: ASPIRIN

REACTIONS (4)
  - Nephrolithiasis [Unknown]
  - Thrombosis [Recovering/Resolving]
  - Eyelid infection [Recovering/Resolving]
  - Constipation [Unknown]

NARRATIVE: CASE EVENT DATE: 20250101
